FAERS Safety Report 6654309-1 (Version None)
Quarter: 2010Q1

REPORT INFORMATION
  Report Type: 
  Country: None (occurrence: None)
  Receive Date: 20100324
  Receipt Date: 20100309
  Transmission Date: 20100710
  Serious: Yes (Other)
  Sender: FDA-Public Use
  Company Number: IT-1181028

PATIENT
  Age: 65 Year
  Sex: Male

DRUGS (3)
  1. TRAVATAN [Suspect]
     Dosage: OPHTHALMIC
     Route: 047
     Dates: start: 20080901
  2. ASPIRIN [Concomitant]
  3. ANTIHYPERTENSIVES (ANTIHYPERTENSIVES) [Concomitant]

REACTIONS (1)
  - EPISTAXIS [None]
